FAERS Safety Report 7634171-0 (Version None)
Quarter: 2011Q3

REPORT INFORMATION
  Report Type: 
  Country: None (occurrence: None)
  Receive Date: 20110725
  Receipt Date: 20110714
  Transmission Date: 20111222
  Serious: Yes (Hospitalization)
  Sender: FDA-Public Use
  Company Number: US-ASTRAZENECA-2011SE20336

PATIENT
  Age: 65 Year
  Sex: Female

DRUGS (3)
  1. RHINOCORT [Suspect]
     Route: 045
  2. SEROQUEL XR [Suspect]
     Route: 048
  3. NEXIUM [Suspect]
     Route: 048

REACTIONS (6)
  - ABNORMAL BEHAVIOUR [None]
  - BREATHING-RELATED SLEEP DISORDER [None]
  - SINUSITIS [None]
  - NASAL CONGESTION [None]
  - DYSPNOEA [None]
  - DRUG DOSE OMISSION [None]
